FAERS Safety Report 5343981-4 (Version None)
Quarter: 2007Q2

REPORT INFORMATION
  Report Type: 
  Country: None (occurrence: None)
  Receive Date: 20070604
  Receipt Date: 20070524
  Transmission Date: 20071010
  Serious: Yes (Hospitalization)
  Sender: FDA-Public Use
  Company Number: SE-AVENTIS-200714272GDDC

PATIENT
  Age: 81 Year
  Sex: Male

DRUGS (8)
  1. FLAGYL [Suspect]
     Indication: GASTROENTERITIS BACTERIAL
     Route: 048
     Dates: start: 20070101, end: 20070108
  2. CIPROXIN                           /00697201/ [Suspect]
     Indication: URINARY TRACT INFECTION
     Route: 048
     Dates: start: 20070104, end: 20070108
  3. OXYNORM [Concomitant]
     Dosage: DOSE: UNK
  4. LAKTULOS [Concomitant]
     Dosage: DOSE: UNK
  5. ACETAMINOPHEN [Concomitant]
     Dosage: DOSE: UNK
  6. BEHEPAN [Concomitant]
     Dosage: DOSE: UNK
  7. SOTALOL HCL [Concomitant]
     Dosage: DOSE: UNK
  8. ZOPIKLON [Concomitant]
     Dosage: DOSE: UNK

REACTIONS (2)
  - MYOCLONUS [None]
  - URINARY TRACT INFECTION [None]
